FAERS Safety Report 16015716 (Version 1)
Quarter: 2019Q1

REPORT INFORMATION
  Report Type: Other
  Country: JP (occurrence: JP)
  Receive Date: 20190228
  Receipt Date: 20190228
  Transmission Date: 20190418
  Serious: Yes (Other)
  Sender: FDA-Public Use
  Company Number: JP-AMEL-2019-00910AA

PATIENT
  Age: 9 Decade
  Sex: Female
  Weight: 29 kg

DRUGS (11)
  1. IMIDAPRIL [Concomitant]
     Active Substance: IMIDAPRIL
     Indication: PRODUCT USED FOR UNKNOWN INDICATION
     Dosage: UNK
     Route: 065
  2. QUETIAPINE TABLETS [Suspect]
     Active Substance: QUETIAPINE
     Dosage: 12.5 MILLIGRAM (ON DAY 36, DECREASED THE DOSE)
     Route: 048
  3. QUETIAPINE TABLETS [Suspect]
     Active Substance: QUETIAPINE
     Dosage: 12.5 MILLIGRAM (ON DAY 7, INCREASED THE DOSE)
     Route: 048
  4. QUETIAPINE TABLETS [Suspect]
     Active Substance: QUETIAPINE
     Indication: PRODUCT USED FOR UNKNOWN INDICATION
     Dosage: 6.25 MILLIGRAM (ON DAY 6)
     Route: 048
     Dates: start: 20180507
  5. QUETIAPINE TABLETS [Suspect]
     Active Substance: QUETIAPINE
     Dosage: 18.75 MILLIGRAM (ON DAY 16, INCREASED THE DOSE)
     Route: 048
  6. PAXIL [Suspect]
     Active Substance: PAROXETINE HYDROCHLORIDE
     Indication: PRODUCT USED FOR UNKNOWN INDICATION
     Dosage: 12.5 MILLIGRAM
     Route: 065
  7. AMLODIPINE [Concomitant]
     Active Substance: AMLODIPINE BESYLATE
     Indication: PRODUCT USED FOR UNKNOWN INDICATION
     Dosage: UNK
     Route: 065
  8. DOXAZOSIN [Concomitant]
     Active Substance: DOXAZOSIN\DOXAZOSIN MESYLATE
     Indication: PRODUCT USED FOR UNKNOWN INDICATION
     Dosage: UNK
     Route: 065
  9. BELSOMRA [Concomitant]
     Active Substance: SUVOREXANT
     Indication: PRODUCT USED FOR UNKNOWN INDICATION
     Dosage: UNK
     Route: 065
  10. ENSURE [Concomitant]
     Active Substance: AMINO ACIDS\DEXTROSE\ELECTROLYTES NOS\SOYBEAN OIL\VITAMINS
     Indication: PRODUCT USED FOR UNKNOWN INDICATION
     Dosage: UNK
     Route: 065
  11. ROZEREM [Concomitant]
     Active Substance: RAMELTEON
     Indication: PRODUCT USED FOR UNKNOWN INDICATION
     Dosage: UNK
     Route: 065

REACTIONS (3)
  - Inappropriate antidiuretic hormone secretion [Recovering/Resolving]
  - Hyponatraemia [Recovering/Resolving]
  - Insomnia [Unknown]
